FAERS Safety Report 12580810 (Version 3)
Quarter: 2016Q3

REPORT INFORMATION
  Report Type: Spontaneous
  Country: CL (occurrence: CL)
  Receive Date: 20160721
  Receipt Date: 20160803
  Transmission Date: 20161109
  Serious: Yes (Other)
  Sender: FDA-Public Use
  Company Number: CL-BIOMARINAP-CL-2016-110443

PATIENT
  Sex: Female

DRUGS (1)
  1. VIMIZIM [Suspect]
     Active Substance: ELOSULFASE ALFA
     Indication: MUCOPOLYSACCHARIDOSIS IV
     Dosage: 65 MG, QW
     Route: 042
     Dates: start: 20150702

REACTIONS (3)
  - Incorrect drug administration rate [Unknown]
  - Pruritus [Recovered/Resolved]
  - Hypersensitivity [Unknown]
